FAERS Safety Report 22947067 (Version 4)
Quarter: 2023Q4

REPORT INFORMATION
  Report Type: Spontaneous
  Country: US (occurrence: US)
  Receive Date: 20230915
  Receipt Date: 20231027
  Transmission Date: 20240110
  Serious: Yes (Death, Disabling, Other)
  Sender: FDA-Public Use
  Company Number: US-OPELLA-2023OHG007799

PATIENT
  Age: 75 Year
  Sex: Male

DRUGS (1)
  1. GOLD BOND MEDICATED ORIGINAL STRENGTH BODY [Suspect]
     Active Substance: MENTHOL
     Indication: Product used for unknown indication
     Dosage: 424,5 MG; 14,15 G/283 G
     Route: 065

REACTIONS (8)
  - Sarcomatoid mesothelioma [Fatal]
  - Exposure to chemical pollution [Fatal]
  - Injury [Unknown]
  - Mental disorder [Unknown]
  - Pain [Unknown]
  - Anxiety [Unknown]
  - Depression [Unknown]
  - Hypersensitivity [Unknown]
